FAERS Safety Report 9729429 (Version 1)
Quarter: 2013Q4

REPORT INFORMATION
  Report Type: Spontaneous
  Country: US (occurrence: US)
  Receive Date: 20131204
  Receipt Date: 20131204
  Transmission Date: 20140711
  Serious: No
  Sender: FDA-Public Use
  Company Number: US-GILEAD-2009-0021407

PATIENT
  Sex: Male

DRUGS (13)
  1. LETAIRIS [Suspect]
     Indication: PULMONARY ARTERIAL HYPERTENSION
     Route: 048
     Dates: start: 20090309
  2. REVATIO [Concomitant]
  3. COREG [Concomitant]
  4. LIPITOR [Concomitant]
  5. TRIAMTERENE/HCTZ [Concomitant]
  6. MAXZIDE [Concomitant]
  7. ASPIRIN [Concomitant]
  8. WARFARIN [Concomitant]
  9. FLONASE [Concomitant]
  10. KLOR-CON [Concomitant]
  11. XYZAL [Concomitant]
  12. PATADAY [Concomitant]
  13. NEPHPLEX [Concomitant]

REACTIONS (1)
  - Abdominal discomfort [Unknown]
